FAERS Safety Report 9582491 (Version 1)
Quarter: 2013Q4

REPORT INFORMATION
  Report Type: Spontaneous
  Country: US (occurrence: US)
  Receive Date: 20131002
  Receipt Date: 20131002
  Transmission Date: 20140711
  Serious: No
  Sender: FDA-Public Use
  Company Number: US-AMGEN-USASP2013041129

PATIENT
  Age: 49 Year
  Sex: Male
  Weight: 101.59 kg

DRUGS (6)
  1. ENBREL [Suspect]
     Indication: PRODUCT USED FOR UNKNOWN INDICATION
     Dosage: 50 MG, QWK
     Route: 058
  2. PREDNISONE [Concomitant]
     Dosage: 5 MG, UNK
  3. PROTONIX [Concomitant]
     Dosage: 40 MG, UNK
  4. ZOLPIDEM [Concomitant]
     Dosage: 5 MG, UNK
  5. LEVITRA [Concomitant]
     Dosage: 10 MG, UNK
  6. ADVIL                              /00109201/ [Concomitant]
     Dosage: 200 MG, UNK

REACTIONS (4)
  - Injection site erythema [Unknown]
  - Injection site swelling [Unknown]
  - Injection site reaction [Unknown]
  - Injection site pain [Unknown]
